FAERS Safety Report 5251996-X (Version None)
Quarter: 2007Q1

REPORT INFORMATION
  Report Type: 
  Country: None (occurrence: None)
  Receive Date: 20070223
  Receipt Date: 20070215
  Transmission Date: 20070707
  Serious: Yes (Other)
  Sender: FDA-Public Use
  Company Number: 010873

PATIENT
  Age: 16 Year
  Sex: Female
  Weight: 77.1 kg

DRUGS (6)
  1. CLARAVIS [Suspect]
     Indication: ACNE
     Dosage: 80 MG, QD, ORAL, 40 MG, QD, ORAL
     Route: 048
     Dates: start: 20061201, end: 20070101
  2. CLARAVIS [Suspect]
     Indication: ACNE
     Dosage: 80 MG, QD, ORAL, 40 MG, QD, ORAL
     Route: 048
     Dates: start: 20070101, end: 20070211
  3. CELEXA [Suspect]
     Indication: DEPRESSION
     Dosage: 40 MG, QD, ORAL
     Route: 048
  4. LEVORA 0.15/30-28 [Concomitant]
  5. ADVAIR DISKUS 100/50 [Concomitant]
  6. ALBUTEROL [Concomitant]

REACTIONS (5)
  - CHEST PAIN [None]
  - DEPRESSION [None]
  - DYSPNOEA [None]
  - OVERDOSE [None]
  - SUICIDE ATTEMPT [None]
